FAERS Safety Report 5717148-1 (Version None)
Quarter: 2008Q2

REPORT INFORMATION
  Report Type: 
  Country: None (occurrence: None)
  Receive Date: 20080423
  Receipt Date: 20080409
  Transmission Date: 20081010
  Serious: Yes (Other)
  Sender: FDA-Public Use
  Company Number: A-NJ2008-20060

PATIENT
  Age: 79 Year
  Sex: Female

DRUGS (2)
  1. TRACLEER [Suspect]
     Indication: PULMONARY HYPERTENSION
     Dosage: 62.5 MG, BID, ORAL, 62.5 MG QD, ORAL
     Route: 048
     Dates: start: 20080327, end: 20080330
  2. TRACLEER [Suspect]
     Indication: PULMONARY HYPERTENSION
     Dosage: 62.5 MG, BID, ORAL, 62.5 MG QD, ORAL
     Route: 048
     Dates: start: 20080331, end: 20080405

REACTIONS (20)
  - ABDOMINAL PAIN [None]
  - BACK PAIN [None]
  - BLOOD GLUCOSE INCREASED [None]
  - CHEST PAIN [None]
  - CONDITION AGGRAVATED [None]
  - CONSTIPATION [None]
  - DRY MOUTH [None]
  - DYSGEUSIA [None]
  - DYSPNOEA [None]
  - EYE DISORDER [None]
  - FLANK PAIN [None]
  - FLUSHING [None]
  - GAIT DISTURBANCE [None]
  - GASTROOESOPHAGEAL REFLUX DISEASE [None]
  - HEADACHE [None]
  - OEDEMA PERIPHERAL [None]
  - PAIN IN EXTREMITY [None]
  - STOMACH DISCOMFORT [None]
  - TREMOR [None]
  - VISION BLURRED [None]
